FAERS Safety Report 5951808-2 (Version None)
Quarter: 2008Q4

REPORT INFORMATION
  Report Type: 
  Country: None (occurrence: None)
  Receive Date: 20081113
  Receipt Date: 20081110
  Transmission Date: 20090506
  Serious: Yes (Death, Hospitalization)
  Sender: FDA-Public Use
  Company Number: A0755600A

PATIENT
  Age: 78 Year
  Sex: Male

DRUGS (5)
  1. LAMICTAL [Suspect]
     Indication: CONVULSION
     Dosage: 200MG TWICE PER DAY
     Route: 048
  2. PAIN MEDICATIONS [Concomitant]
  3. DECADRON [Concomitant]
  4. PHENOBARBITAL TAB [Concomitant]
  5. MS CONTIN [Concomitant]

REACTIONS (1)
  - BRAIN NEOPLASM [None]
